FAERS Safety Report 9776931 (Version 1)
Quarter: 2013Q4

REPORT INFORMATION
  Report Type: Other
  Country: GB (occurrence: GB)
  Receive Date: 20131221
  Receipt Date: 20131221
  Transmission Date: 20140711
  Serious: Yes (Disabling)
  Sender: FDA-Public Use
  Company Number: GB-SUN PHARMACEUTICAL INDUSTRIES LTD-2013SUN05200

PATIENT
  Age: 52 Year
  Sex: Male

DRUGS (2)
  1. OLANZAPINE 10 MG TABLETS [Suspect]
     Indication: MANIA
     Dosage: 10 MG, OD
     Route: 048
     Dates: start: 20130901, end: 20131115
  2. PROPRANOLOL [Concomitant]

REACTIONS (8)
  - Agitation [Recovering/Resolving]
  - Weight decreased [Recovering/Resolving]
  - Abnormal behaviour [Recovering/Resolving]
  - Pyrexia [Recovering/Resolving]
  - Hyperhidrosis [Recovering/Resolving]
  - Dystonia [Recovering/Resolving]
  - Coordination abnormal [Recovering/Resolving]
  - Tremor [Recovering/Resolving]
